FAERS Safety Report 6538257-3 (Version None)
Quarter: 2010Q1

REPORT INFORMATION
  Report Type: 
  Country: None (occurrence: None)
  Receive Date: 20100112
  Receipt Date: 20100112
  Transmission Date: 20100710
  Serious: Yes (Other)
  Sender: FDA-Public Use
  Company Number: None

PATIENT
  Sex: Female

DRUGS (1)
  1. NUVIGIL [Suspect]
     Indication: NARCOLEPSY
     Dosage: 150 MG QAM PO
     Route: 048
     Dates: start: 20091214, end: 20091231

REACTIONS (2)
  - INSOMNIA [None]
  - MANIA [None]
